FAERS Safety Report 7824534-2 (Version None)
Quarter: 2011Q4

REPORT INFORMATION
  Report Type: 
  Country: None (occurrence: None)
  Receive Date: 20111019
  Receipt Date: 20111006
  Transmission Date: 20120403
  Serious: Yes (Hospitalization)
  Sender: FDA-Public Use
  Company Number: US-BAYER-201033801NA

PATIENT
  Age: 40 Year
  Sex: Female
  Weight: 75 kg

DRUGS (16)
  1. ADVAIR DISKUS 100/50 [Concomitant]
     Dosage: UNK UNK, BID
  2. NASACORT [Concomitant]
  3. FLONASE [Concomitant]
  4. DROSPIRENONE AND ETHINYL ESTRADIOL [Suspect]
     Indication: CONTRACEPTION
     Route: 048
     Dates: start: 20040601
  5. SINGULAIR [Concomitant]
     Dosage: 10 MG, QD
     Route: 048
  6. INATAL [Concomitant]
     Dosage: 0.8 MG, QID
  7. LANTUS [Concomitant]
     Route: 058
  8. NOVOLIN N [Concomitant]
     Route: 058
  9. RESPIRATORY SYSTEM [Concomitant]
  10. SIMVASTATIN [Concomitant]
     Dosage: 10 MG, QD
     Route: 048
  11. YAZ [Suspect]
     Indication: CONTRACEPTION
     Route: 048
     Dates: start: 20040601
  12. CLARITIN [Concomitant]
     Dosage: 10 MG, QD
     Route: 048
  13. YASMIN [Suspect]
     Indication: CONTRACEPTION
     Route: 048
     Dates: start: 20040601
  14. ALBUTEROL [Concomitant]
  15. METFORMIN HCL [Concomitant]
     Dosage: 500 MG, QD
  16. CLARINEX [Concomitant]
     Route: 048

REACTIONS (2)
  - DEEP VEIN THROMBOSIS [None]
  - PAIN [None]
